FAERS Safety Report 14263179 (Version 1)
Quarter: 2017Q4

REPORT INFORMATION
  Report Type: Spontaneous
  Country: US (occurrence: US)
  Receive Date: 20171208
  Receipt Date: 20171208
  Transmission Date: 20180321
  Serious: No
  Sender: FDA-Public Use
  Company Number: US-TEVA-2017-US-827757

PATIENT
  Age: 68 Year
  Sex: Female
  Weight: 77.1 kg

DRUGS (1)
  1. MUCUS ER [Suspect]
     Active Substance: GUAIFENESIN
     Indication: COUGH
     Dosage: 2400 MILLIGRAM DAILY; PRN
     Route: 048
     Dates: start: 201601

REACTIONS (2)
  - Oropharyngeal pain [Not Recovered/Not Resolved]
  - Foreign body [Recovered/Resolved]

NARRATIVE: CASE EVENT DATE: 20171119
